FAERS Safety Report 13728093 (Version 2)
Quarter: 2017Q3

REPORT INFORMATION
  Report Type: Spontaneous
  Country: US (occurrence: US)
  Receive Date: 20170707
  Receipt Date: 20170818
  Transmission Date: 20171127
  Serious: Yes (Other)
  Sender: FDA-Public Use
  Company Number: US-PFIZER INC-2017294210

PATIENT
  Age: 34 Year
  Sex: Female

DRUGS (24)
  1. NEURONTIN [Suspect]
     Active Substance: GABAPENTIN
     Indication: NEURALGIA
     Dosage: UNK
  2. KEPPRA [Concomitant]
     Active Substance: LEVETIRACETAM
     Indication: SEIZURE
  3. COZAAR [Concomitant]
     Active Substance: LOSARTAN POTASSIUM
     Indication: ARNOLD-CHIARI MALFORMATION
     Dosage: 25 MG, 1X/DAY (@BED)
     Dates: start: 2016
  4. RITALIN [Concomitant]
     Active Substance: METHYLPHENIDATE HYDROCHLORIDE
     Indication: ATTENTION DEFICIT/HYPERACTIVITY DISORDER
     Dosage: 20 MG, 3X/DAY
     Dates: start: 2016
  5. TOPAMAX [Concomitant]
     Active Substance: TOPIRAMATE
     Indication: TRANSIENT ISCHAEMIC ATTACK
  6. BOTOX [Concomitant]
     Active Substance: ONABOTULINUMTOXINA
     Indication: NECK PAIN
  7. TOPAMAX [Concomitant]
     Active Substance: TOPIRAMATE
     Indication: HEADACHE
     Dosage: 150 MG, 2X/DAY
     Dates: start: 2012
  8. CELEBREX [Concomitant]
     Active Substance: CELECOXIB
     Indication: PAIN
     Dosage: 200 MG, 2X/DAY
     Dates: start: 2016
  9. BOTOX [Concomitant]
     Active Substance: ONABOTULINUMTOXINA
     Indication: HEADACHE
     Dosage: 100 IU, EVERY 8-10 WEEKS
     Dates: start: 2010
  10. CELEXA [Concomitant]
     Active Substance: CITALOPRAM HYDROBROMIDE
     Indication: DEPRESSION
  11. KEPPRA [Concomitant]
     Active Substance: LEVETIRACETAM
     Indication: HEADACHE
  12. AMBIEN [Concomitant]
     Active Substance: ZOLPIDEM TARTRATE
     Indication: INSOMNIA
     Dosage: 10 MG, 1X/DAY (@BED)
     Dates: start: 2003
  13. MIRALAX [Concomitant]
     Active Substance: POLYETHYLENE GLYCOL 3350
     Dosage: 17 G, 1X/DAY (@BED)
  14. CELEXA [Concomitant]
     Active Substance: CITALOPRAM HYDROBROMIDE
     Indication: ANXIETY
  15. KEPPRA [Concomitant]
     Active Substance: LEVETIRACETAM
     Indication: ARNOLD-CHIARI MALFORMATION
     Dosage: 250 MG, DAILY
     Dates: start: 2012
  16. COZAAR [Concomitant]
     Active Substance: LOSARTAN POTASSIUM
     Indication: MIGRAINE
  17. ZOFRAN [Concomitant]
     Active Substance: ONDANSETRON HYDROCHLORIDE
     Indication: NAUSEA
     Dosage: 8 MG, 3X/DAY (EVERY 8 HOURS)
     Dates: start: 2014
  18. KEPPRA [Concomitant]
     Active Substance: LEVETIRACETAM
     Indication: TRANSIENT ISCHAEMIC ATTACK
  19. TOPAMAX [Concomitant]
     Active Substance: TOPIRAMATE
     Indication: SEIZURE
  20. SOMA [Concomitant]
     Active Substance: CARISOPRODOL
     Dosage: 350 UNK, 3X/DAY
  21. CELEXA [Concomitant]
     Active Substance: CITALOPRAM HYDROBROMIDE
     Indication: PAIN
     Dosage: 40 MG, 1X/DAY
     Dates: start: 2015
  22. KEPPRA [Concomitant]
     Active Substance: LEVETIRACETAM
     Indication: MIGRAINE
  23. COZAAR [Concomitant]
     Active Substance: LOSARTAN POTASSIUM
     Indication: HEADACHE
  24. VALIUM [Concomitant]
     Active Substance: DIAZEPAM
     Dosage: 5 OR 10MG, 1X/DAY (@ BED)

REACTIONS (21)
  - Headache [Unknown]
  - Vision blurred [Unknown]
  - Depression [Unknown]
  - Aggression [Unknown]
  - Abdominal pain upper [Unknown]
  - Nausea [Unknown]
  - Abdominal distension [Unknown]
  - Fatigue [Unknown]
  - Dyskinesia [Unknown]
  - Drug ineffective for unapproved indication [Not Recovered/Not Resolved]
  - Crying [Unknown]
  - Asthenia [Unknown]
  - Dizziness [Unknown]
  - Constipation [Unknown]
  - Anxiety [Unknown]
  - Mood swings [Unknown]
  - Gingival pain [Unknown]
  - Vomiting [Unknown]
  - Hypoaesthesia [Unknown]
  - Condition aggravated [Unknown]
  - Coordination abnormal [Unknown]
